FAERS Safety Report 9731221 (Version 4)
Quarter: 2013Q4

REPORT INFORMATION
  Report Type: Report from Study
  Country: TR (occurrence: TR)
  Receive Date: 20131203
  Receipt Date: 20131218
  Transmission Date: 20140711
  Serious: Yes (Death)
  Sender: FDA-Public Use
  Company Number: TR-PFIZER INC-2013338617

PATIENT
  Age: 80 Year
  Sex: Male
  Weight: 90 kg

DRUGS (3)
  1. CORDARONE [Suspect]
     Indication: ATRIAL FIBRILLATION
     Dosage: 600 MG, DAILY
     Route: 065
  2. BELOC ZOK [Suspect]
     Dosage: 30 X 2 X 100 MG PER DAY
     Route: 065
  3. ASPIRIN [Concomitant]
     Indication: CORONARY ARTERY DISEASE
     Dosage: UNK

REACTIONS (1)
  - Death [Fatal]
